FAERS Safety Report 8299224-5 (Version None)
Quarter: 2012Q2

REPORT INFORMATION
  Report Type: 
  Country: None (occurrence: None)
  Receive Date: 20120418
  Receipt Date: 20120418
  Transmission Date: 20120825
  Serious: Yes (Hospitalization, Disabling, Other)
  Sender: FDA-Public Use
  Company Number: None

PATIENT
  Sex: Female
  Weight: 74.8435 kg

DRUGS (1)
  1. HYDROMORPHONE HCL [Suspect]
     Indication: PROCEDURAL PAIN
     Dosage: 1 OR 2 (2MG TABS) EVERY 3HRS AS NEEDED BY MOUTH
     Route: 048
     Dates: start: 20120123

REACTIONS (2)
  - PERSONALITY CHANGE [None]
  - AMNESIA [None]
